FAERS Safety Report 8784438 (Version 3)
Quarter: 2013Q1

REPORT INFORMATION
  Report Type: Spontaneous
  Country: FR (occurrence: FR)
  Receive Date: 20120913
  Receipt Date: 20130123
  Transmission Date: 20140127
  Serious: Yes (Death, Life-Threatening, Hospitalization)
  Sender: FDA-Public Use
  Company Number: FR-PFIZER INC-2012219573

PATIENT
  Age: 59 Year
  Sex: Male

DRUGS (13)
  1. SOLU-MEDROL [Suspect]
     Indication: GLIOBLASTOMA
     Dosage: 120 MG/2ML, 1X/DAY
     Route: 030
     Dates: start: 20120705, end: 201208
  2. TEMODAL [Suspect]
     Indication: GLIOBLASTOMA
     Dosage: 150 MG, 1X/DAY
     Route: 048
     Dates: start: 20120705, end: 20120815
  3. PREDNISOLONE [Suspect]
     Dosage: 60 MG, 2X/DAY
     Route: 048
     Dates: start: 201208
  4. LAMICTAL [Concomitant]
  5. DIFFU K [Concomitant]
  6. DOMPERIDONE [Concomitant]
  7. INEXIUM [Concomitant]
  8. MOVICOL [Concomitant]
  9. ESCITALOPRAM [Concomitant]
  10. KEPPRA [Concomitant]
  11. LANTUS [Concomitant]
  12. HUMALOG [Concomitant]
  13. LOVENOX [Concomitant]

REACTIONS (3)
  - Pneumocystis jirovecii pneumonia [Fatal]
  - Disease progression [Fatal]
  - Glioblastoma [Fatal]
